FAERS Safety Report 6698473-7 (Version None)
Quarter: 2010Q2

REPORT INFORMATION
  Report Type: 
  Country: None (occurrence: None)
  Receive Date: 20100427
  Receipt Date: 20100419
  Transmission Date: 20101027
  Serious: Yes (Hospitalization, Other)
  Sender: FDA-Public Use
  Company Number: US-SANOFI-AVENTIS-2010SA023122

PATIENT
  Age: 74 Year
  Sex: Female

DRUGS (3)
  1. AMARYL [Suspect]
     Route: 048
  2. METFORMIN [Suspect]
     Route: 048
     Dates: start: 20050101, end: 20090101
  3. ANTIHYPERTENSIVES [Suspect]
     Indication: BLOOD PRESSURE

REACTIONS (8)
  - ACUTE MYOCARDIAL INFARCTION [None]
  - ARTERIOSCLEROSIS [None]
  - CARDIAC ARREST [None]
  - CARDIOMYOPATHY [None]
  - CHEST DISCOMFORT [None]
  - DYSPNOEA [None]
  - EJECTION FRACTION DECREASED [None]
  - WEIGHT INCREASED [None]
